FAERS Safety Report 19068585 (Version 1)
Quarter: 2021Q1

REPORT INFORMATION
  Report Type: Spontaneous
  Country: US (occurrence: US)
  Receive Date: 20210328
  Receipt Date: 20210328
  Transmission Date: 20210420
  Serious: Yes (Other)
  Sender: FDA-Public Use
  Company Number: None

PATIENT
  Age: 58 Year
  Sex: Female
  Weight: 81 kg

DRUGS (1)
  1. LEVOFLOXACIN. [Suspect]
     Active Substance: LEVOFLOXACIN
     Indication: SINUSITIS
     Dates: start: 20180709, end: 20180709

REACTIONS (4)
  - Food allergy [None]
  - Muscular weakness [None]
  - Throat tightness [None]
  - Anxiety [None]

NARRATIVE: CASE EVENT DATE: 20180709
